FAERS Safety Report 19006686 (Version 2)
Quarter: 2021Q2

REPORT INFORMATION
  Report Type: Report from Study
  Country: CA (occurrence: CA)
  Receive Date: 20210315
  Receipt Date: 20210409
  Transmission Date: 20210717
  Serious: Yes (Other)
  Sender: FDA-Public Use
  Company Number: CA-JNJFOC-20210219705

PATIENT
  Age: 16 Year
  Sex: Male
  Weight: 69.5 kg

DRUGS (2)
  1. REMICADE [Suspect]
     Active Substance: INFLIXIMAB
     Indication: COLITIS ULCERATIVE
     Dosage: LAST INFUSION ON 08?FEB?2021 AND ADMINISTRATION DATE: 08?MAR?2021
     Route: 042
  2. REMICADE [Suspect]
     Active Substance: INFLIXIMAB
     Route: 042
     Dates: start: 20201229

REACTIONS (5)
  - Off label use [Unknown]
  - Colitis ulcerative [Recovering/Resolving]
  - Product use issue [Unknown]
  - Incorrect drug administration rate [Unknown]
  - Hypotension [Unknown]

NARRATIVE: CASE EVENT DATE: 20201229
